FAERS Safety Report 9340434 (Version 3)
Quarter: 2013Q4

REPORT INFORMATION
  Report Type: Spontaneous
  Country: JP (occurrence: JP)
  Receive Date: 20130610
  Receipt Date: 20131112
  Transmission Date: 20140711
  Serious: Yes (Hospitalization, Other)
  Sender: FDA-Public Use
  Company Number: JP-UCBSA-088404

PATIENT
  Age: 74 Year
  Sex: Male

DRUGS (7)
  1. NEUPRO [Suspect]
     Indication: PARKINSON^S DISEASE
     Dosage: 6 MG/ 24 HR
     Route: 061
     Dates: start: 20130518, end: 20130523
  2. NEUPRO [Suspect]
     Indication: PARKINSON^S DISEASE
     Dosage: 10 MG/ 24 HR
     Route: 061
     Dates: start: 20130524, end: 20130524
  3. PRAMIPEXOLE HYDROCHLORIDE HYDRATE [Concomitant]
     Dosage: 11.5 MG DAILY
     Dates: end: 20130522
  4. PERGOLIDE MESILATE [Concomitant]
     Dosage: DAILY 750 MCG
     Dates: end: 20130523
  5. LEVODOPA_CARBIDOPA HYDRATE [Concomitant]
     Dosage: 450MG/DAY
  6. YOKUKANSANE [Concomitant]
     Dosage: 7.5 MG/DAY
     Dates: start: 20100506
  7. ENTACAPONE [Concomitant]
     Dosage: 300 MG/DAY
     Dates: start: 20120306

REACTIONS (4)
  - Inappropriate affect [Recovered/Resolved]
  - Hallucination [Recovered/Resolved]
  - Depressed level of consciousness [Unknown]
  - Agitation [Recovering/Resolving]
